FAERS Safety Report 7582676-3 (Version None)
Quarter: 2011Q2

REPORT INFORMATION
  Report Type: 
  Country: None (occurrence: None)
  Receive Date: 20110630
  Receipt Date: 20110628
  Transmission Date: 20111010
  Serious: No
  Sender: FDA-Public Use
  Company Number: US-PFIZER INC-2011145099

PATIENT
  Age: 27 Year
  Sex: Male
  Weight: 90.703 kg

DRUGS (1)
  1. VIAGRA [Suspect]
     Indication: ERECTILE DYSFUNCTION
     Dosage: UNK
     Route: 048
     Dates: start: 20110101, end: 20110101

REACTIONS (2)
  - PENILE PAIN [None]
  - PENIS DISORDER [None]
